FAERS Safety Report 7027035-7 (Version None)
Quarter: 2010Q3

REPORT INFORMATION
  Report Type: 
  Country: None (occurrence: None)
  Receive Date: 20100929
  Receipt Date: 20100604
  Transmission Date: 20110219
  Serious: Yes (Hospitalization)
  Sender: FDA-Public Use
  Company Number: ES-002166

PATIENT
  Sex: Female
  Weight: 51 kg

DRUGS (13)
  1. MENOPUR [Suspect]
     Indication: IN VITRO FERTILISATION
     Dosage: (150 IU SUBCUTANEOUS)
     Route: 058
     Dates: start: 20100226, end: 20100307
  2. ORGALUTRAN [Concomitant]
  3. UTROGESTAN [Concomitant]
  4. PROPOFOL [Concomitant]
  5. FENTANILO [Concomitant]
  6. ATROPINA [Concomitant]
  7. ACETYLSALICYLIC ACID W/METAMIZOLE SODIUM MONO [Concomitant]
  8. AZITROM [Concomitant]
  9. CETROTIDE [Concomitant]
  10. PARACETAMOL [Concomitant]
  11. AUGMENTIN '125' [Concomitant]
  12. DOSTINEX [Concomitant]
  13. PRIMPERAN [Concomitant]

REACTIONS (2)
  - NAUSEA [None]
  - OVARIAN HYPERSTIMULATION SYNDROME [None]
